FAERS Safety Report 6020429-8 (Version None)
Quarter: 2008Q4

REPORT INFORMATION
  Report Type: 
  Country: None (occurrence: None)
  Receive Date: 20081226
  Receipt Date: 20081217
  Transmission Date: 20090506
  Serious: Yes (Hospitalization)
  Sender: FDA-Public Use
  Company Number: JP-BAYER-200811881BYL

PATIENT
  Age: 67 Year
  Sex: Male
  Weight: 52 kg

DRUGS (10)
  1. NEXAVAR [Suspect]
     Indication: RENAL CELL CARCINOMA STAGE IV
     Dosage: TOTAL DAILY DOSE: 400 MG  UNIT DOSE: 200 MG
     Route: 048
     Dates: start: 20080527, end: 20080531
  2. RENIVACE [Concomitant]
     Indication: HYPERTENSION
     Dosage: AS USED: 10 MG
     Route: 048
  3. ADALAT CC [Concomitant]
     Indication: HYPERTENSION
     Dosage: TOTAL DAILY DOSE: 20 MG  UNIT DOSE: 20 MG
     Route: 048
  4. GASTER D [Concomitant]
     Indication: GASTRIC ULCER
     Dosage: AS USED: 40 MG  UNIT DOSE: 20 MG
     Route: 048
  5. CIBENOL [Concomitant]
     Indication: ATRIAL FIBRILLATION
     Dosage: AS USED: 150 MG
     Route: 048
  6. MYONAL [Concomitant]
     Indication: BACK PAIN
     Dosage: AS USED: 150 MG
     Route: 048
  7. DAI-KENCHU-TO [Concomitant]
     Dosage: AS USED: 7.5 G
     Route: 048
  8. NORTRIPTYLINE HCL [Concomitant]
     Dosage: AS USED: 30 MG
     Route: 048
  9. OXYCONTIN [Concomitant]
     Dosage: AS USED: 40 MG
     Route: 048
  10. OXINORM [Concomitant]
     Dosage: AS USED: 5 MG
     Route: 048

REACTIONS (4)
  - ALANINE AMINOTRANSFERASE INCREASED [None]
  - ASPARTATE AMINOTRANSFERASE INCREASED [None]
  - HEPATIC FUNCTION ABNORMAL [None]
  - JAUNDICE [None]
